FAERS Safety Report 18362453 (Version 1)
Quarter: 2020Q4

REPORT INFORMATION
  Report Type: Report from Study
  Country: None (occurrence: US)
  Receive Date: 20201009
  Receipt Date: 20201009
  Transmission Date: 20210114
  Serious: Yes (Other)
  Sender: FDA-Public Use
  Company Number: US-ABBVIE-20K-163-3483687-00

PATIENT
  Sex: Female

DRUGS (1)
  1. HUMIRA [Suspect]
     Active Substance: ADALIMUMAB
     Indication: RHEUMATOID ARTHRITIS
     Route: 058
     Dates: start: 202006

REACTIONS (20)
  - Hypersensitivity [Not Recovered/Not Resolved]
  - Incorrect dose administered [Unknown]
  - Arthralgia [Unknown]
  - Hand fracture [Unknown]
  - Fracture pain [Unknown]
  - Wrong technique in product usage process [Unknown]
  - Depression [Unknown]
  - Upper limb fracture [Unknown]
  - Post procedural complication [Unknown]
  - Loss of personal independence in daily activities [Not Recovered/Not Resolved]
  - Fear of injection [Unknown]
  - Drug ineffective [Unknown]
  - Fall [Unknown]
  - Rhinorrhoea [Not Recovered/Not Resolved]
  - Joint stiffness [Unknown]
  - Dyspnoea [Unknown]
  - Muscular weakness [Not Recovered/Not Resolved]
  - Decreased appetite [Unknown]
  - Joint swelling [Not Recovered/Not Resolved]
  - Anxiety [Unknown]

NARRATIVE: CASE EVENT DATE: 2020
